FAERS Safety Report 10756131 (Version 1)
Quarter: 2015Q1

REPORT INFORMATION
  Report Type: Spontaneous
  Country: US (occurrence: None)
  Receive Date: 20150123
  Receipt Date: 20150123
  Transmission Date: 20150721
  Serious: Yes (Hospitalization, Other)
  Sender: FDA-Public Use
  Company Number: 2014TUS011364

PATIENT
  Age: 30 Year
  Sex: Male
  Weight: 67.1 kg

DRUGS (1)
  1. ENTYVIO [Suspect]
     Active Substance: VEDOLIZUMAB
     Indication: COLITIS
     Dosage: FIRST DOSE
     Route: 042
     Dates: start: 20140822, end: 20140822

REACTIONS (1)
  - Cerebral haemorrhage [None]
